FAERS Safety Report 7602868-4 (Version None)
Quarter: 2011Q3

REPORT INFORMATION
  Report Type: 
  Country: None (occurrence: None)
  Receive Date: 20110711
  Receipt Date: 20110711
  Transmission Date: 20111222
  Serious: Yes (Hospitalization)
  Sender: FDA-Public Use
  Company Number: None

PATIENT
  Age: 63 Year
  Sex: Female
  Weight: 72.1219 kg

DRUGS (1)
  1. CIPROFLOXACIN HCL [Suspect]
     Indication: CYSTITIS

REACTIONS (12)
  - ANXIETY [None]
  - HYPERHIDROSIS [None]
  - NIGHTMARE [None]
  - VISION BLURRED [None]
  - CONFUSIONAL STATE [None]
  - INSOMNIA [None]
  - IRRITABILITY [None]
  - FEELING ABNORMAL [None]
  - CARDIAC DISORDER [None]
  - ARTHRALGIA [None]
  - PALPITATIONS [None]
  - PAIN IN EXTREMITY [None]
